FAERS Safety Report 21022636 (Version 15)
Quarter: 2024Q1

REPORT INFORMATION
  Report Type: Spontaneous
  Country: IN (occurrence: IN)
  Receive Date: 20220629
  Receipt Date: 20240223
  Transmission Date: 20240410
  Serious: Yes (Other)
  Sender: FDA-Public Use
  Company Number: IN-PFIZER INC-2020081710

PATIENT
  Age: 70 Year
  Sex: Female
  Weight: 53 kg

DRUGS (28)
  1. PALBOCICLIB [Suspect]
     Active Substance: PALBOCICLIB
     Indication: Breast cancer metastatic
     Dosage: 1X/DAY
     Route: 048
     Dates: start: 20190308
  2. PALBOCICLIB [Suspect]
     Active Substance: PALBOCICLIB
     Dosage: 1X/DAY, 3 WEEKS ON THEN 1 WEEK OFF
     Route: 048
     Dates: start: 20190312, end: 201904
  3. PALBOCICLIB [Suspect]
     Active Substance: PALBOCICLIB
     Dosage: 1X/DAY FOR 3 WEEKS
     Route: 048
     Dates: start: 20190517
  4. PALBOCICLIB [Suspect]
     Active Substance: PALBOCICLIB
     Dosage: 1X/DAY
     Route: 048
     Dates: start: 20190615, end: 20190806
  5. PALBOCICLIB [Suspect]
     Active Substance: PALBOCICLIB
     Dosage: 1X/DAY
     Route: 048
     Dates: start: 20190826, end: 20190916
  6. PALBOCICLIB [Suspect]
     Active Substance: PALBOCICLIB
     Dosage: 1X/DAY
     Route: 048
     Dates: end: 20191022
  7. PALBOCICLIB [Suspect]
     Active Substance: PALBOCICLIB
     Dosage: 1X/DAY 3 WEEKS ON THEN 1 WEEK OFF
     Route: 048
  8. PALBOCICLIB [Suspect]
     Active Substance: PALBOCICLIB
     Dosage: 1X/DAY FOR 3 WEEKS
     Route: 048
     Dates: start: 20191220
  9. PALBOCICLIB [Suspect]
     Active Substance: PALBOCICLIB
     Dosage: DAILY
     Route: 048
     Dates: start: 20210427
  10. PALBOCICLIB [Suspect]
     Active Substance: PALBOCICLIB
     Dosage: OD
     Route: 048
     Dates: start: 20210603
  11. PALBOCICLIB [Suspect]
     Active Substance: PALBOCICLIB
     Dosage: OD
     Route: 048
     Dates: start: 20211026
  12. PALBOCICLIB [Suspect]
     Active Substance: PALBOCICLIB
     Dosage: OD
     Dates: start: 20211130
  13. PALBOCICLIB [Suspect]
     Active Substance: PALBOCICLIB
     Dosage: OD
     Dates: start: 20220324
  14. PALBOCICLIB [Suspect]
     Active Substance: PALBOCICLIB
     Dosage: OD
     Dates: start: 20220411, end: 20220501
  15. PALBOCICLIB [Suspect]
     Active Substance: PALBOCICLIB
     Dosage: OD
     Dates: start: 20230107
  16. PALBOCICLIB [Suspect]
     Active Substance: PALBOCICLIB
     Dosage: OD FOR 3 WEEKS ON THEN 1 WEEK GAP
     Dates: start: 20230210
  17. PALBOCICLIB [Suspect]
     Active Substance: PALBOCICLIB
     Dosage: 1X/DAY
     Route: 048
     Dates: start: 20230420
  18. PALBOCICLIB [Suspect]
     Active Substance: PALBOCICLIB
     Dosage: UNK
  19. D3 MUST [Concomitant]
     Dosage: 60000 DF, MONTHLY (EVERY SUNDAY FOR 3 MONTHS ON THEN MONTHLY THERAPY)
  20. ASPIRIN [Concomitant]
     Active Substance: ASPIRIN
     Dosage: UNK
  21. LETROZOLE [Concomitant]
     Active Substance: LETROZOLE
     Indication: Breast cancer metastatic
     Dosage: 2.5 MG, 1X/DAY
     Route: 048
  22. DOMPERIDONE\RABEPRAZOLE [Concomitant]
     Active Substance: DOMPERIDONE\RABEPRAZOLE
     Dosage: UNK
  23. CALCIUM CARBONATE\CHOLECALCIFEROL [Concomitant]
     Active Substance: CALCIUM CARBONATE\CHOLECALCIFEROL
     Dosage: 500 MG, 2X/DAY
     Dates: start: 20200409
  24. OSTEOFOS [Concomitant]
     Indication: Osteoporosis
     Dosage: 70 MG, WEEKLY (EVERY SUNDAY (EMPTY STOMACH) )
  25. LETROZOLE [Concomitant]
     Active Substance: LETROZOLE
     Dosage: 2.5 MG, 1X/DAY
     Route: 048
     Dates: start: 20200409
  26. ONDEM [Concomitant]
     Dosage: UNK
  27. APIGAT [Concomitant]
     Dosage: UNK
     Dates: start: 20210209, end: 20230331
  28. PROCHLORPERAZINE MALEATE [Concomitant]
     Active Substance: PROCHLORPERAZINE MALEATE
     Dosage: UNK

REACTIONS (33)
  - Rectal haemorrhage [Unknown]
  - Leukopenia [Unknown]
  - Neutrophil count decreased [Unknown]
  - Lymphocytosis [Unknown]
  - Lymphoedema [Unknown]
  - Oedema peripheral [Unknown]
  - Fibrosis [Unknown]
  - Pain in extremity [Not Recovered/Not Resolved]
  - Chest pain [Unknown]
  - Hypoacusis [Unknown]
  - Constipation [Unknown]
  - Full blood count decreased [Unknown]
  - Pallor [Unknown]
  - Tongue disorder [Unknown]
  - Hiatus hernia [Unknown]
  - Tongue erythema [Unknown]
  - Red blood cell count decreased [Unknown]
  - Red cell distribution width increased [Unknown]
  - Lymphocyte count increased [Unknown]
  - Monocyte count decreased [Unknown]
  - Rhinorrhoea [Unknown]
  - Arthritis [Unknown]
  - Joint swelling [Unknown]
  - Eastern Cooperative Oncology Group performance status worsened [Unknown]
  - Blood creatinine increased [Unknown]
  - Pain [Unknown]
  - White blood cell count decreased [Unknown]
  - Platelet count decreased [Unknown]
  - Decreased appetite [Unknown]
  - Haemoglobin decreased [Unknown]
  - Haematocrit decreased [Unknown]
  - Blood glucose increased [Recovered/Resolved]
  - Blood bilirubin unconjugated decreased [Unknown]

NARRATIVE: CASE EVENT DATE: 20210201
